FAERS Safety Report 12357224 (Version 1)
Quarter: 2016Q2

REPORT INFORMATION
  Report Type: Spontaneous
  Country: FR (occurrence: FR)
  Receive Date: 20160511
  Receipt Date: 20160511
  Transmission Date: 20160815
  Serious: No
  Sender: FDA-Public Use
  Company Number: FR-QOL MEDICAL, LLC-1051976

PATIENT
  Age: 18 Month
  Sex: Female

DRUGS (1)
  1. SUCRAID [Suspect]
     Active Substance: SACROSIDASE
     Indication: SUCRASE-ISOMALTASE DEFICIENCY
     Route: 048
     Dates: start: 20150501

REACTIONS (8)
  - Diarrhoea [Unknown]
  - Thirst [Unknown]
  - Product quality issue [None]
  - No therapeutic response [None]
  - Gastrooesophageal reflux disease [Unknown]
  - Insomnia [Unknown]
  - Abdominal pain upper [Unknown]
  - Decreased appetite [None]

NARRATIVE: CASE EVENT DATE: 20150813
